FAERS Safety Report 4901079-0 (Version None)
Quarter: 2006Q1

REPORT INFORMATION
  Report Type: 
  Country: None (occurrence: None)
  Receive Date: 20060113
  Receipt Date: 20051130
  Transmission Date: 20060701
  Serious: No
  Sender: FDA-Public Use
  Company Number: 2005SP004201

PATIENT
  Age: 76 Year
  Sex: Female

DRUGS (10)
  1. LUNESTA [Suspect]
     Dosage: 3 MG;HS;ORAL ; 2 MG;HS;ORAL
     Route: 048
     Dates: start: 20050901, end: 20051129
  2. LUNESTA [Suspect]
     Dosage: 3 MG;HS;ORAL ; 2 MG;HS;ORAL
     Route: 048
     Dates: start: 20051130
  3. COREG [Concomitant]
  4. COZAAR [Concomitant]
  5. LEVOTHROID [Concomitant]
  6. NORVASC [Concomitant]
  7. TORSEMIDE [Concomitant]
  8. WARFARIN SODIUM [Concomitant]
  9. POTASSIUM CHLORIDE [Concomitant]
  10. CARDIAC THERAPY [Concomitant]

REACTIONS (3)
  - DRUG EFFECT DECREASED [None]
  - HEADACHE [None]
  - SOMNOLENCE [None]
